FAERS Safety Report 6105744-1 (Version None)
Quarter: 2009Q1

REPORT INFORMATION
  Report Type: 
  Country: None (occurrence: None)
  Receive Date: 20090306
  Receipt Date: 20090304
  Transmission Date: 20090719
  Serious: Yes (Hospitalization)
  Sender: FDA-Public Use
  Company Number: US-JNJFOC-20090202973

PATIENT
  Sex: Female
  Weight: 102.51 kg

DRUGS (8)
  1. DOXIL [Suspect]
     Indication: MULTIPLE MYELOMA
     Dosage: ADMINISTERED ON DAY 4 OF CYCLE
     Route: 042
  2. VELCADE [Suspect]
     Route: 042
     Dates: start: 20090109, end: 20090209
  3. VELCADE [Suspect]
     Route: 042
     Dates: start: 20090109, end: 20090209
  4. VELCADE [Suspect]
     Indication: MULTIPLE MYELOMA
     Dosage: ADMINISTERED DAYS 1, 4, 8 AND 11 OF CYCLE
     Route: 042
     Dates: start: 20090109, end: 20090209
  5. DECADRON [Concomitant]
     Route: 065
  6. BENADRYL [Concomitant]
     Route: 065
  7. TYLENOL [Concomitant]
     Route: 048
  8. ARANESP [Concomitant]
     Route: 065

REACTIONS (5)
  - ANAEMIA [None]
  - OEDEMA PERIPHERAL [None]
  - PNEUMONIA [None]
  - THROMBOCYTOPENIA [None]
  - URINARY RETENTION [None]
